FAERS Safety Report 13930858 (Version 3)
Quarter: 2017Q4

REPORT INFORMATION
  Report Type: Spontaneous
  Country: US (occurrence: US)
  Receive Date: 20170901
  Receipt Date: 20171024
  Transmission Date: 20180320
  Serious: No
  Sender: FDA-Public Use
  Company Number: PHEH2017US027621

PATIENT
  Sex: Male

DRUGS (1)
  1. DUREZOL [Suspect]
     Active Substance: DIFLUPREDNATE
     Indication: IRITIS
     Dosage: UNK UNK, QID COUPLE OF DROPS
     Route: 047
     Dates: start: 20170828, end: 20170912

REACTIONS (1)
  - Expired product administered [Unknown]
